FAERS Safety Report 18908256 (Version 1)
Quarter: 2021Q1

REPORT INFORMATION
  Report Type: Spontaneous
  Country: JP (occurrence: JP)
  Receive Date: 20210218
  Receipt Date: 20210218
  Transmission Date: 20210420
  Serious: No
  Sender: FDA-Public Use
  Company Number: JP-ALKEM LABORATORIES LIMITED-JP-ALKEM-2020-01889

PATIENT
  Age: 4 Year
  Sex: Female

DRUGS (1)
  1. CEPHALEXIN. [Suspect]
     Active Substance: CEPHALEXIN
     Indication: DACRYOCYSTITIS
     Dosage: 100 MILLIGRAM/KILOGRAM, QD
     Route: 048

REACTIONS (1)
  - Therapy non-responder [Unknown]
